FAERS Safety Report 19854871 (Version 1)
Quarter: 2021Q3

REPORT INFORMATION
  Report Type: Spontaneous
  Country: US (occurrence: US)
  Receive Date: 20210920
  Receipt Date: 20210920
  Transmission Date: 20211014
  Serious: No
  Sender: FDA-Public Use
  Company Number: US-AUROBINDO-AUR-APL-2021-002379

PATIENT
  Sex: Female

DRUGS (2)
  1. ALPRAZOLAM TABLETS USP 2MG [Suspect]
     Active Substance: ALPRAZOLAM
     Dosage: 2 DOSAGE FORM
     Route: 065
     Dates: end: 20210114
  2. ALPRAZOLAM TABLETS USP 2MG [Suspect]
     Active Substance: ALPRAZOLAM
     Indication: ANXIETY
     Dosage: 1 DOSAGE FORM, ONCE A DAY
     Route: 065
     Dates: end: 20210114

REACTIONS (5)
  - Headache [Unknown]
  - Panic attack [Unknown]
  - Drug ineffective [Unknown]
  - Extra dose administered [Unknown]
  - Product substitution issue [Unknown]
